FAERS Safety Report 4661804-3 (Version None)
Quarter: 2005Q2

REPORT INFORMATION
  Report Type: 
  Country: None (occurrence: None)
  Receive Date: 20050512
  Receipt Date: 20050512
  Transmission Date: 20051028
  Serious: Yes (Life-Threatening)
  Sender: FDA-Public Use
  Company Number: None

PATIENT
  Age: 36 Year
  Sex: Female
  Weight: 86.637 kg

DRUGS (2)
  1. EFFEXOR [Suspect]
     Indication: OBSESSIVE-COMPULSIVE DISORDER
     Dosage: TAPERING DURING SCHEDULE
     Dates: start: 20040101, end: 20050501
  2. ALLEGRA [Concomitant]

REACTIONS (2)
  - AGGRESSION [None]
  - HOMICIDAL IDEATION [None]
